FAERS Safety Report 24365753 (Version 1)
Quarter: 2024Q3

REPORT INFORMATION
  Report Type: Report from Study
  Country: CA (occurrence: CA)
  Receive Date: 20240926
  Receipt Date: 20240926
  Transmission Date: 20241017
  Serious: Yes (Other)
  Sender: TAKEDA
  Company Number: CA-TAKEDA-2024TUS053064

PATIENT
  Age: 70 Year
  Sex: Female
  Weight: 66.3 kg

DRUGS (3)
  1. VEDOLIZUMAB [Suspect]
     Active Substance: VEDOLIZUMAB
     Indication: Crohn^s disease
     Dosage: 300 MILLIGRAM
     Route: 042
     Dates: start: 20240522
  2. VEDOLIZUMAB [Suspect]
     Active Substance: VEDOLIZUMAB
     Indication: Colitis ulcerative
     Dosage: 300 MILLIGRAM
     Route: 042
  3. PREDNISONE [Concomitant]
     Active Substance: PREDNISONE
     Dosage: 40 MILLIGRAM
     Dates: start: 20240425

REACTIONS (14)
  - Cerebrovascular accident [Unknown]
  - Seizure [Unknown]
  - Swollen tongue [Recovering/Resolving]
  - Paraesthesia oral [Recovering/Resolving]
  - Irritability [Recovering/Resolving]
  - Pain in jaw [Unknown]
  - Lethargy [Unknown]
  - Toothache [Unknown]
  - Malaise [Unknown]
  - Migraine [Unknown]
  - Urinary tract infection [Unknown]
  - Chills [Unknown]
  - Headache [Unknown]
  - Fatigue [Recovering/Resolving]

NARRATIVE: CASE EVENT DATE: 20240522
